APPROVED DRUG PRODUCT: ELAVIL
Active Ingredient: AMITRIPTYLINE HYDROCHLORIDE
Strength: 10MG/ML
Dosage Form/Route: INJECTABLE;INJECTION
Application: N012704 | Product #001
Applicant: ASTRAZENECA PHARMACEUTICALS LP
Approved: Approved Prior to Jan 1, 1982 | RLD: No | RS: No | Type: DISCN